FAERS Safety Report 21141795 (Version 1)
Quarter: 2022Q3

REPORT INFORMATION
  Report Type: Spontaneous
  Country: US (occurrence: US)
  Receive Date: 20220728
  Receipt Date: 20220728
  Transmission Date: 20221027
  Serious: Yes (Death, Hospitalization, Other)
  Sender: FDA-Public Use
  Company Number: US-VELOXIS PHARMACEUTICALS-2022VELUS-000472

PATIENT
  Age: 35 Year
  Sex: Female

DRUGS (3)
  1. TACROLIMUS [Suspect]
     Active Substance: TACROLIMUS
     Indication: Prophylaxis against transplant rejection
     Dosage: UNK
  2. MYCOPHENOLIC ACID [Suspect]
     Active Substance: MYCOPHENOLIC ACID
     Indication: Prophylaxis against transplant rejection
     Dosage: UNK
  3. UNSPECIFIED INGREDIENT [Suspect]
     Active Substance: UNSPECIFIED INGREDIENT
     Indication: Prophylaxis against transplant rejection
     Dosage: UNK

REACTIONS (11)
  - Death [Fatal]
  - Decubitus ulcer [Unknown]
  - Malnutrition [Unknown]
  - Osteopenia [Unknown]
  - Pulmonary embolism [Unknown]
  - Osteomyelitis [Unknown]
  - Mycobacterium abscessus infection [Unknown]
  - Pseudomonas infection [Unknown]
  - Acute respiratory failure [Unknown]
  - Diarrhoea [Unknown]
  - Off label use [Unknown]
